FAERS Safety Report 25791305 (Version 1)
Quarter: 2025Q3

REPORT INFORMATION
  Report Type: Spontaneous
  Country: US (occurrence: US)
  Receive Date: 20250911
  Receipt Date: 20250911
  Transmission Date: 20251021
  Serious: No
  Sender: GRIFOLS
  Company Number: US-IGSA-BIG0037792

PATIENT
  Age: 35 Year
  Sex: Male

DRUGS (1)
  1. GAMUNEX-C [Suspect]
     Active Substance: HUMAN IMMUNOGLOBULIN G
     Indication: Chronic inflammatory demyelinating polyradiculoneuropathy
     Dosage: 70 GRAM, Q.4WK.
     Route: 042
     Dates: start: 20250901

REACTIONS (2)
  - Urticaria [Recovering/Resolving]
  - Infusion site urticaria [Recovering/Resolving]

NARRATIVE: CASE EVENT DATE: 20250901
